FAERS Safety Report 21982801 (Version 1)
Quarter: 2023Q1

REPORT INFORMATION
  Report Type: Other
  Country: FR (occurrence: None)
  Receive Date: 20230213
  Receipt Date: 20230213
  Transmission Date: 20230418
  Serious: Yes (Hospitalization, Other)
  Sender: FDA-Public Use
  Company Number: FR-ROCHE-3282287

PATIENT
  Age: 8 Year
  Sex: Female

DRUGS (4)
  1. RITUXIMAB [Suspect]
     Active Substance: RITUXIMAB
     Indication: Neuromyelitis optica spectrum disorder
     Dosage: INITIALLY AT EACH RELAPSE AND THEN EVERY 6 MONTHS
     Route: 042
     Dates: start: 2009, end: 2017
  2. MYCOPHENOLATE MOFETIL [Suspect]
     Active Substance: MYCOPHENOLATE MOFETIL
     Indication: Neuromyelitis optica spectrum disorder
     Route: 065
     Dates: start: 2012, end: 2015
  3. OFATUMUMAB [Concomitant]
     Active Substance: OFATUMUMAB
     Indication: Neuromyelitis optica spectrum disorder
     Dosage: ONE INJECTION OF 20 MG EVERY WEEK DURING 4 WEEKS
     Route: 058
     Dates: start: 201708
  4. OFATUMUMAB [Concomitant]
     Active Substance: OFATUMUMAB
     Dosage: ONE INJECTION OF 20 MG EVERY 4 WEEKS
     Route: 058

REACTIONS (4)
  - Off label use [Unknown]
  - Infusion related reaction [Unknown]
  - Sepsis [Unknown]
  - Anaphylactoid reaction [Unknown]

NARRATIVE: CASE EVENT DATE: 20090101
